FAERS Safety Report 22627452 (Version 1)
Quarter: 2023Q2

REPORT INFORMATION
  Report Type: Spontaneous
  Country: CO (occurrence: CO)
  Receive Date: 20230622
  Receipt Date: 20230622
  Transmission Date: 20230722
  Serious: Yes (Other)
  Sender: FDA-Public Use
  Company Number: CO-PFIZER INC-PV202300106690

PATIENT
  Age: 73 Year
  Sex: Female

DRUGS (1)
  1. ENBREL [Suspect]
     Active Substance: ETANERCEPT
     Indication: Rheumatoid arthritis
     Dosage: 50 MG, WEEKLY
     Route: 058
     Dates: start: 2020, end: 202212

REACTIONS (5)
  - Visual impairment [Unknown]
  - Toxoplasmosis [Unknown]
  - Decreased immune responsiveness [Unknown]
  - Memory impairment [Unknown]
  - Hepatic steatosis [Unknown]

NARRATIVE: CASE EVENT DATE: 20221201
